FAERS Safety Report 5330619-5 (Version None)
Quarter: 2007Q2

REPORT INFORMATION
  Report Type: 
  Country: None (occurrence: None)
  Receive Date: 20070516
  Receipt Date: 20070508
  Transmission Date: 20071010
  Serious: Yes (Hospitalization)
  Sender: FDA-Public Use
  Company Number: CIP07000866

PATIENT
  Age: 68 Year
  Sex: Female

DRUGS (3)
  1. RISEDRONATE SODIUM [Suspect]
     Indication: OSTEOPOROSIS
     Dosage: 35 MG ONCE WEEKLY, ORAL
     Route: 048
     Dates: start: 20060101
  2. DIFORMIN (METFORMIN HYDROCHLORIDE) TABLET [Concomitant]
  3. DIOVAN COMP (VALSARTAN, HYDROCHLOROTHIAZIDE) [Concomitant]

REACTIONS (4)
  - GINGIVAL RECESSION [None]
  - OPEN WOUND [None]
  - TOOTH FRACTURE [None]
  - TOOTH INFECTION [None]
